FAERS Safety Report 17796512 (Version 4)
Quarter: 2022Q1

REPORT INFORMATION
  Report Type: Spontaneous
  Country: US (occurrence: US)
  Receive Date: 20200518
  Receipt Date: 20220104
  Transmission Date: 20220423
  Serious: Yes (Hospitalization, Other)
  Sender: FDA-Public Use
  Company Number: None

PATIENT

DRUGS (1)
  1. VALACYCLOVIR [Suspect]
     Active Substance: VALACYCLOVIR HYDROCHLORIDE
     Indication: Herpes zoster
     Dosage: 1000 MILLIGRAM, TID (RECEIVED 2 DOSES)
     Route: 065

REACTIONS (6)
  - Neurotoxicity [Recovered/Resolved]
  - Hallucination, visual [Recovered/Resolved]
  - Overdose [Unknown]
  - Drug dose titration not performed [Unknown]
  - Encephalopathy [Recovered/Resolved]
  - Tremor [Recovered/Resolved]
